FAERS Safety Report 11135719 (Version 1)
Quarter: 2015Q2

REPORT INFORMATION
  Report Type: Spontaneous
  Country: US (occurrence: None)
  Receive Date: 20150522
  Receipt Date: 20150522
  Transmission Date: 20150821
  Serious: Yes (Other)
  Sender: FDA-Public Use
  Company Number: None

PATIENT
  Age: 64 Year
  Sex: Male

DRUGS (1)
  1. ZYTIGA [Suspect]
     Active Substance: ABIRATERONE ACETATE
     Indication: HEAD AND NECK CANCER
     Route: 048
     Dates: start: 20150421

REACTIONS (3)
  - Abdominal pain upper [None]
  - Gastrooesophageal reflux disease [None]
  - Flatulence [None]

NARRATIVE: CASE EVENT DATE: 20150421
